FAERS Safety Report 5680878-4 (Version None)
Quarter: 2008Q1

REPORT INFORMATION
  Report Type: 
  Country: None (occurrence: None)
  Receive Date: 20080326
  Receipt Date: 20080314
  Transmission Date: 20080703
  Serious: Yes (Other)
  Sender: FDA-Public Use
  Company Number: US-PFIZER INC-2008024323

PATIENT
  Sex: Female
  Weight: 72.6 kg

DRUGS (6)
  1. GEODON [Suspect]
     Indication: BIPOLAR I DISORDER
     Route: 048
  2. ZOLOFT [Concomitant]
  3. LEVOTHYROXINE SODIUM [Concomitant]
  4. TOPAMAX [Concomitant]
  5. INDERAL [Concomitant]
  6. IMITREX [Concomitant]

REACTIONS (1)
  - BIPOLAR DISORDER [None]
